FAERS Safety Report 22976212 (Version 3)
Quarter: 2024Q3

REPORT INFORMATION
  Report Type: Report from Study
  Country: US (occurrence: US)
  Receive Date: 20230925
  Receipt Date: 20240801
  Transmission Date: 20241017
  Serious: No
  Sender: NOVARTIS
  Company Number: US-002147023-NVSC2023US206666

PATIENT
  Sex: Female

DRUGS (1)
  1. ENTRESTO [Suspect]
     Active Substance: SACUBITRIL\VALSARTAN
     Indication: Product used for unknown indication
     Dosage: 24 MG, QD (OTHER DOSAGE 24/26 MG)
     Route: 048
     Dates: start: 20220803

REACTIONS (2)
  - Off label use [Unknown]
  - Incorrect dose administered [Unknown]
